FAERS Safety Report 19727677 (Version 3)
Quarter: 2022Q2

REPORT INFORMATION
  Report Type: Report from Study
  Country: US (occurrence: US)
  Receive Date: 20210819
  Receipt Date: 20220616
  Transmission Date: 20220721
  Serious: Yes (Other)
  Sender: FDA-Public Use
  Company Number: US-ABBVIE-21K-163-3956917-00

PATIENT
  Sex: Female
  Weight: 71.732 kg

DRUGS (6)
  1. HUMIRA [Suspect]
     Active Substance: ADALIMUMAB
     Indication: Rheumatoid arthritis
     Route: 058
  2. HUMIRA [Suspect]
     Active Substance: ADALIMUMAB
     Route: 058
  3. HUMIRA [Suspect]
     Active Substance: ADALIMUMAB
     Route: 058
  4. HUMIRA [Suspect]
     Active Substance: ADALIMUMAB
     Route: 058
  5. PFIZER-BIONTECH COVID-19 VACCINE [Concomitant]
     Active Substance: TOZINAMERAN
     Indication: COVID-19 immunisation
     Dosage: 1ST DOSE
     Route: 030
     Dates: start: 20210216, end: 20210216
  6. PFIZER-BIONTECH COVID-19 VACCINE [Concomitant]
     Active Substance: TOZINAMERAN
     Dosage: 2ND DOSE
     Route: 030
     Dates: start: 20210309, end: 20210309

REACTIONS (13)
  - Subdural haematoma [Unknown]
  - Weight decreased [Unknown]
  - Brain injury [Unknown]
  - Cerebral haemorrhage [Unknown]
  - Macular degeneration [Not Recovered/Not Resolved]
  - Intracardiac thrombus [Unknown]
  - Cardiac pacemaker replacement [Recovered/Resolved]
  - Haematoma [Unknown]
  - Pain [Unknown]
  - Therapeutic response shortened [Unknown]
  - Fall [Unknown]
  - Alopecia [Unknown]
  - Memory impairment [Not Recovered/Not Resolved]

NARRATIVE: CASE EVENT DATE: 20050101
